FAERS Safety Report 4280903-1 (Version None)
Quarter: 2004Q1

REPORT INFORMATION
  Report Type: 
  Country: None (occurrence: None)
  Receive Date: 20040129
  Receipt Date: 20031203
  Transmission Date: 20041129
  Serious: Yes (Life-Threatening, Other)
  Sender: FDA-Public Use
  Company Number: NL-GLAXOSMITHKLINE-B0316924A

PATIENT
  Age: 58 Year
  Sex: Male
  Weight: 85 kg

DRUGS (5)
  1. MALARONE [Suspect]
     Indication: PROPHYLAXIS
     Dosage: 350MG PER DAY
     Dates: start: 20031010
  2. TOLBUTAMIDE [Concomitant]
     Indication: DIABETES MELLITUS
     Dosage: 1TAB PER DAY
     Route: 048
  3. ACETYLSALICYLIC ACID SRT [Concomitant]
     Dosage: 1TAB PER DAY
     Route: 048
  4. DILANORM [Concomitant]
     Dosage: 1TAB PER DAY
     Route: 048
  5. LIPITOR [Concomitant]
     Route: 048

REACTIONS (2)
  - ANAPHYLACTIC SHOCK [None]
  - CIRCULATORY COLLAPSE [None]
